FAERS Safety Report 9766481 (Version 1)
Quarter: 2013Q4

REPORT INFORMATION
  Report Type: Spontaneous
  Country: US (occurrence: US)
  Receive Date: 20131217
  Receipt Date: 20131217
  Transmission Date: 20140711
  Serious: No
  Sender: FDA-Public Use
  Company Number: US-GLAXOSMITHKLINE-A1028824A

PATIENT
  Age: 71 Year
  Sex: Male

DRUGS (6)
  1. VOTRIENT [Suspect]
     Indication: RENAL CELL CARCINOMA
     Dosage: 800MG PER DAY
     Route: 048
     Dates: start: 20130619
  2. HIGH BLOOD PRESSURE PILL [Concomitant]
  3. UNKNOWN MEDICATION [Concomitant]
     Indication: MICTURITION DISORDER
  4. AMBIEN [Concomitant]
  5. ADVAIR DISKUS [Concomitant]
  6. VITAMIN B 12 [Concomitant]

REACTIONS (4)
  - Decreased appetite [Not Recovered/Not Resolved]
  - Therapeutic response unexpected [Unknown]
  - Nausea [Recovered/Resolved]
  - Blood pressure increased [Unknown]
